FAERS Safety Report 10354772 (Version 2)
Quarter: 2014Q3

REPORT INFORMATION
  Report Type: Spontaneous
  Country: JP (occurrence: JP)
  Receive Date: 20140731
  Receipt Date: 20140818
  Transmission Date: 20150326
  Serious: Yes (Hospitalization, Other)
  Sender: FDA-Public Use
  Company Number: JP-PFIZER INC-2014211081

PATIENT
  Age: 71 Year
  Sex: Male
  Weight: 64.8 kg

DRUGS (7)
  1. LANSOPRAZOLE. [Suspect]
     Active Substance: LANSOPRAZOLE
     Indication: HELICOBACTER INFECTION
     Dosage: 0.5 DF, 2X/DAY (0.5 DF, BID)
     Route: 048
     Dates: start: 20140712, end: 20140714
  2. AMOXICILLIN. [Suspect]
     Active Substance: AMOXICILLIN
     Indication: HELICOBACTER INFECTION
     Dosage: 0.5 DF, 2X/DAY (0.5 DF, BID)
     Route: 048
     Dates: start: 20140712, end: 20140714
  3. SOLDEM 3A [Concomitant]
     Active Substance: CARBOHYDRATES\POTASSIUM CHLORIDE\SODIUM CHLORIDE\SODIUM LACTATE
     Dosage: UNK
     Dates: start: 20140716, end: 20140719
  4. METRONIDAZOLE. [Suspect]
     Active Substance: METRONIDAZOLE
     Indication: HELICOBACTER INFECTION
     Dosage: 0.5 DF, 2X/DAY (0.5 DF, BID)
     Route: 048
     Dates: start: 20140712, end: 20140714
  5. LACTEC [Concomitant]
     Active Substance: CALCIUM CHLORIDE ANHYDROUS\POTASSIUM CHLORIDE\SODIUM CHLORIDE\SODIUM LACTATE
     Dosage: UNK
     Dates: start: 20140716, end: 20140719
  6. SOLULACT S [Concomitant]
     Dosage: UNK
     Dates: start: 20140716, end: 20140719
  7. ADONA [Concomitant]
     Active Substance: CARBAZOCHROME SODIUM SULFONATE
     Dosage: UNK
     Dates: start: 20140716, end: 20140719

REACTIONS (3)
  - Pseudomembranous colitis [Unknown]
  - Melaena [Unknown]
  - Haematochezia [Recovered/Resolved]

NARRATIVE: CASE EVENT DATE: 20140715
